FAERS Safety Report 7706274-3 (Version None)
Quarter: 2011Q3

REPORT INFORMATION
  Report Type: 
  Country: None (occurrence: None)
  Receive Date: 20110824
  Receipt Date: 20110817
  Transmission Date: 20111222
  Serious: Yes (Other)
  Sender: FDA-Public Use
  Company Number: DE-ROCHE-795229

PATIENT
  Sex: Female

DRUGS (1)
  1. VALCYTE [Suspect]
     Route: 065
     Dates: start: 20110301

REACTIONS (2)
  - NERVOUS SYSTEM DISORDER [None]
  - MENINGITIS FUNGAL [None]
